FAERS Safety Report 8806893 (Version 1)
Quarter: 2012Q4

REPORT INFORMATION
  Report Type: 
  Country: US (occurrence: US)
  Receive Date: 20120925
  Receipt Date: 20120925
  Transmission Date: 20130627
  Serious: Yes (Death, Other)
  Sender: FDA-Public Use
  Company Number: US-ROCHE-1101903

PATIENT
  Sex: Male

DRUGS (3)
  1. AVASTIN [Suspect]
     Indication: RENAL CANCER
     Route: 065
     Dates: start: 20051026
  2. AVASTIN [Suspect]
     Route: 065
     Dates: start: 20051109
  3. AVASTIN [Suspect]
     Route: 065
     Dates: start: 20051122

REACTIONS (3)
  - Death [Fatal]
  - Metastases to liver [Unknown]
  - Metastases to bone [Unknown]
